FAERS Safety Report 26134300 (Version 1)
Quarter: 2025Q4

REPORT INFORMATION
  Report Type: Spontaneous
  Country: US (occurrence: US)
  Receive Date: 20251209
  Receipt Date: 20251209
  Transmission Date: 20260117
  Serious: No
  Sender: GLENMARK
  Company Number: US-GLENMARK PHARMACEUTICALS-2025GMK099120

PATIENT

DRUGS (2)
  1. ABIRATERONE ACETATE [Suspect]
     Active Substance: ABIRATERONE ACETATE
     Indication: Neoplasm malignant
     Dosage: 4 DOSAGE FORM, 4 DOSAGE FORM (FOUR TABLETS BY MOUTH)
     Route: 048
  2. ABIRATERONE ACETATE [Suspect]
     Active Substance: ABIRATERONE ACETATE
     Dosage: 4 DOSAGE FORM (FOUR TABLETS BY MOUTH)
     Route: 048

REACTIONS (2)
  - Product use issue [Unknown]
  - Product packaging quantity issue [Unknown]
